FAERS Safety Report 9130892 (Version 1)
Quarter: 2013Q1

REPORT INFORMATION
  Report Type: Spontaneous
  Country: US (occurrence: US)
  Receive Date: 20130301
  Receipt Date: 20130301
  Transmission Date: 20140127
  Serious: No
  Sender: FDA-Public Use
  Company Number: US-MYLANLABS-2012S1001412

PATIENT
  Sex: Female

DRUGS (7)
  1. METOPROLOL TARTRATE TABLETS, USP [Suspect]
     Indication: BLOOD PRESSURE INCREASED
     Route: 048
     Dates: start: 201111
  2. LEVOXYL [Concomitant]
     Indication: HYPOTHYROIDISM
  3. HCTZ [Concomitant]
     Indication: OEDEMA
  4. POTASSIUM [Concomitant]
  5. VITAMIN C [Concomitant]
  6. VITAMIN D [Concomitant]
  7. VITAMIN B1 [Concomitant]

REACTIONS (3)
  - Myalgia [Recovered/Resolved]
  - Local swelling [Recovered/Resolved]
  - Bone pain [Recovered/Resolved]
